FAERS Safety Report 15545752 (Version 2)
Quarter: 2019Q1

REPORT INFORMATION
  Report Type: Spontaneous
  Country: JP (occurrence: JP)
  Receive Date: 20181024
  Receipt Date: 20190102
  Transmission Date: 20190417
  Serious: No
  Sender: FDA-Public Use
  Company Number: JP-BAYER-2018-193594

PATIENT
  Age: 66 Year
  Sex: Male
  Weight: 50.9 kg

DRUGS (11)
  1. IRBESARTAN. [Concomitant]
     Active Substance: IRBESARTAN
     Indication: HYPERTENSION
     Dosage: DAILY DOSE 100 MG
     Dates: start: 201508
  2. AZELNIDIPINE [Concomitant]
     Active Substance: AZELNIDIPINE
     Indication: HYPERTENSION
     Dosage: DAILY DOSE 4 MG
  3. NEXAVAR [Suspect]
     Active Substance: SORAFENIB
     Indication: RENAL CELL CARCINOMA
     Dosage: 400 MG/DAY
     Route: 048
     Dates: start: 20110318, end: 20130111
  4. AXITINIB [Suspect]
     Active Substance: AXITINIB
     Indication: LUNG NEOPLASM
     Dosage: DAILY DOSE 10 MG
  5. AXITINIB [Suspect]
     Active Substance: AXITINIB
     Indication: LUNG NEOPLASM
     Dosage: DAILY DOSE 12 MG
     Dates: start: 201405
  6. AXITINIB [Suspect]
     Active Substance: AXITINIB
     Indication: LUNG NEOPLASM
     Dosage: DAILY DOSE 10 MG
     Route: 048
     Dates: start: 201301
  7. PREDNISOLONE. [Concomitant]
     Active Substance: PREDNISOLONE
     Indication: LIVER DISORDER
     Dosage: DAILY DOSE 5 MG
     Route: 048
     Dates: start: 20111118, end: 20120623
  8. NEXAVAR [Suspect]
     Active Substance: SORAFENIB
     Indication: RENAL CELL CARCINOMA
     Dosage: 800 MG/DAY
     Route: 048
     Dates: start: 20101209, end: 20110317
  9. AXITINIB [Suspect]
     Active Substance: AXITINIB
     Indication: LUNG NEOPLASM
     Dosage: DAILY DOSE 6 MG
  10. FAMOTIDINE. [Concomitant]
     Active Substance: FAMOTIDINE
     Indication: GASTRITIS
     Dosage: DAILY DOSE 20 MG
     Route: 048
     Dates: start: 20111014, end: 20140529
  11. AXITINIB [Suspect]
     Active Substance: AXITINIB
     Indication: LUNG NEOPLASM
     Dosage: DAILY DOSE 14 MG
     Dates: start: 201512

REACTIONS (2)
  - Arteriosclerosis [None]
  - Hepatic function abnormal [None]

NARRATIVE: CASE EVENT DATE: 201103
